FAERS Safety Report 13622299 (Version 1)
Quarter: 2017Q2

REPORT INFORMATION
  Report Type: Spontaneous
  Country: US (occurrence: US)
  Receive Date: 20170607
  Receipt Date: 20170607
  Transmission Date: 20170830
  Serious: Yes (Hospitalization)
  Sender: FDA-Public Use
  Company Number: US-ROCHE-695574

PATIENT
  Age: 14 Year
  Sex: Female

DRUGS (11)
  1. TRETINOIN. [Suspect]
     Active Substance: TRETINOIN
     Dosage: CONSOLIDATION THERAPY, FOR 7 DAYS EVERY 2 WEEKS
     Route: 048
  2. TRETINOIN. [Suspect]
     Active Substance: TRETINOIN
     Dosage: MAINTENANCE THERAPY:30MG/M2/D DAILY FOR 7 DAYS EVERY 2 WEEKS.
     Route: 048
  3. CYTARABINE. [Concomitant]
     Active Substance: CYTARABINE
     Dosage: SECOND COURSE OF CONSOLIDATION CHEMOTHERAPY:(1 G/M2/DOSE OVER 3 H EVERY 12 H) FOR A TOTAL OF 8 DOSES
     Route: 042
  4. CYTARABINE. [Concomitant]
     Active Substance: CYTARABINE
     Indication: ACUTE PROMYELOCYTIC LEUKAEMIA
     Dosage: INDUCTION THERAPY: FOR 7 DAYS AS CONTINUOUS INFUSION
     Route: 042
  5. DAUNOMYCIN [Suspect]
     Active Substance: DAUNORUBICIN
     Indication: ACUTE PROMYELOCYTIC LEUKAEMIA
     Dosage: INDUCTION THERAPY: OVER 30 MIN FOR 4 DAYS
     Route: 042
  6. CYTARABINE. [Concomitant]
     Active Substance: CYTARABINE
     Dosage: CONSOLIDATION THERAPY COURSE 1:FOR 7 DAYS AS CONTINUOUS INFUSION
     Route: 042
  7. TRETINOIN. [Suspect]
     Active Substance: TRETINOIN
     Indication: ACUTE PROMYELOCYTIC LEUKAEMIA
     Dosage: INDUCTION THERAPY: DAILY FOR 7 DAYS EVERY 2 WEEKS.
     Route: 048
  8. DAUNOMYCIN [Suspect]
     Active Substance: DAUNORUBICIN
     Dosage: 2ND CONSOLIDATION CYCLE FOR 3 DAYS
     Route: 042
  9. 6-MERCAPTOPURINE [Concomitant]
     Active Substance: MERCAPTOPURINE
     Indication: ACUTE PROMYELOCYTIC LEUKAEMIA
     Dosage: MAINTENANCE THERAPY: DOSE REPORTED AS: 480MG/M2/WEEK, DAILY
     Route: 048
  10. DAUNOMYCIN [Suspect]
     Active Substance: DAUNORUBICIN
     Dosage: CONSOLIDATION THERAPY: OVER 15 MIN FOR 3 DAYS
     Route: 042
  11. METHOTREXATE. [Concomitant]
     Active Substance: METHOTREXATE
     Indication: ACUTE PROMYELOCYTIC LEUKAEMIA
     Dosage: MAINTENANCE THERAPY
     Route: 048

REACTIONS (2)
  - Cardiac failure congestive [Recovering/Resolving]
  - Cardiomyopathy [Recovering/Resolving]
